FAERS Safety Report 11704662 (Version 1)
Quarter: 2015Q4

REPORT INFORMATION
  Report Type: Spontaneous
  Country: FR (occurrence: FR)
  Receive Date: 20151106
  Receipt Date: 20151106
  Transmission Date: 20160304
  Serious: Yes (Other)
  Sender: FDA-Public Use
  Company Number: PHHY2015FR143019

PATIENT
  Age: 66 Year
  Sex: Male

DRUGS (2)
  1. ZOMETA [Suspect]
     Active Substance: ZOLEDRONIC ACID
     Indication: PRODUCT USED FOR UNKNOWN INDICATION
     Dosage: UNK
     Route: 042
     Dates: start: 20111115, end: 20130116
  2. XGEVA [Suspect]
     Active Substance: DENOSUMAB
     Indication: PRODUCT USED FOR UNKNOWN INDICATION
     Dosage: 120 MG, QMO (1 IN 4 WEEKS)
     Route: 042
     Dates: start: 20130213, end: 20140212

REACTIONS (2)
  - Osteonecrosis of jaw [Not Recovered/Not Resolved]
  - Gingivitis [Not Recovered/Not Resolved]

NARRATIVE: CASE EVENT DATE: 201406
